FAERS Safety Report 18235770 (Version 3)
Quarter: 2020Q3

REPORT INFORMATION
  Report Type: Report from Study
  Country: IT (occurrence: IT)
  Receive Date: 20200905
  Receipt Date: 20200928
  Transmission Date: 20201103
  Serious: Yes (Other)
  Sender: FDA-Public Use
  Company Number: NVSC2020IT242304

PATIENT
  Age: 46 Year
  Sex: Female

DRUGS (1)
  1. FINGOLIMOD. [Suspect]
     Active Substance: FINGOLIMOD
     Indication: PRODUCT USED FOR UNKNOWN INDICATION
     Dosage: UNK
     Route: 065
     Dates: start: 201211

REACTIONS (4)
  - Hyperpyrexia [Recovering/Resolving]
  - Central nervous system lesion [Unknown]
  - Lymphopenia [Unknown]
  - Asthenia [Unknown]

NARRATIVE: CASE EVENT DATE: 2013
